FAERS Safety Report 7653516-9 (Version None)
Quarter: 2011Q3

REPORT INFORMATION
  Report Type: 
  Country: None (occurrence: None)
  Receive Date: 20110802
  Receipt Date: 20110802
  Transmission Date: 20111222
  Serious: Yes (Disabling)
  Sender: FDA-Public Use
  Company Number: None

PATIENT
  Sex: Male
  Weight: 83.9154 kg

DRUGS (1)
  1. BOTOX [Suspect]
     Indication: MUSCLE TWITCHING
     Dosage: DON'T KNOW
     Dates: start: 20100415

REACTIONS (1)
  - VIITH NERVE PARALYSIS [None]
